FAERS Safety Report 4493489-3 (Version None)
Quarter: 2004Q4

REPORT INFORMATION
  Report Type: 
  Country: None (occurrence: None)
  Receive Date: 20041105
  Receipt Date: 20041020
  Transmission Date: 20050328
  Serious: Yes (Disabling)
  Sender: FDA-Public Use
  Company Number: CA-JNJFOC-20041002506

PATIENT
  Sex: Female
  Weight: 73 kg

DRUGS (8)
  1. REMICADE [Suspect]
     Route: 042
  2. REMICADE [Suspect]
     Indication: DRUG USE FOR UNKNOWN INDICATION
     Dosage: 100MG/VIAL
     Route: 042
  3. BEXTRA [Concomitant]
     Route: 049
  4. PREDNISONE [Concomitant]
     Route: 049
  5. CALCIUM WITH VITAMIN D [Concomitant]
     Route: 049
  6. CALCIUM WITH VITAMIN D [Concomitant]
     Route: 049
  7. CALCIUM WITH VITAMIN D [Concomitant]
     Dosage: 500 MG AND 400 UI
     Route: 049
  8. FOLIC ACID [Concomitant]
     Route: 049

REACTIONS (4)
  - ARTHRALGIA [None]
  - JOINT SWELLING [None]
  - MOVEMENT DISORDER [None]
  - PALMAR-PLANTAR ERYTHRODYSAESTHESIA SYNDROME [None]
